FAERS Safety Report 7724298-7 (Version None)
Quarter: 2011Q3

REPORT INFORMATION
  Report Type: 
  Country: None (occurrence: None)
  Receive Date: 20110901
  Receipt Date: 20110825
  Transmission Date: 20111222
  Serious: Yes (Life-Threatening, Hospitalization)
  Sender: FDA-Public Use
  Company Number: US-CELGENEUS-163-21880-11081954

PATIENT
  Sex: Male
  Weight: 67.6 kg

DRUGS (6)
  1. CYTARABINE [Concomitant]
     Route: 065
  2. CYTARABINE [Concomitant]
  3. IDARUBICIN HCL [Concomitant]
  4. IDARUBICIN HCL [Concomitant]
     Route: 065
  5. REVLIMID [Suspect]
     Dosage: 20 MILLIGRAM
     Route: 048
     Dates: start: 20110726, end: 20110808
  6. REVLIMID [Suspect]

REACTIONS (1)
  - ARTERIAL THROMBOSIS LIMB [None]
